APPROVED DRUG PRODUCT: TOPICORT
Active Ingredient: DESOXIMETASONE
Strength: 0.25%
Dosage Form/Route: OINTMENT;TOPICAL
Application: A074286 | Product #001
Applicant: TARO PHARMACEUTICAL INDUSTRIES LTD
Approved: Jun 7, 1996 | RLD: No | RS: No | Type: DISCN